FAERS Safety Report 20340399 (Version 1)
Quarter: 2022Q1

REPORT INFORMATION
  Report Type: Spontaneous
  Country: CA (occurrence: CA)
  Receive Date: 20220117
  Receipt Date: 20220117
  Transmission Date: 20220423
  Serious: Yes (Other)
  Sender: FDA-Public Use
  Company Number: CA-TEVA-2022-CA-1998472

PATIENT

DRUGS (1)
  1. AMPHETAMINE\DEXTROAMPHETAMINE [Suspect]
     Active Substance: AMPHETAMINE\DEXTROAMPHETAMINE
     Indication: Product used for unknown indication
     Route: 065

REACTIONS (10)
  - Asthenia [Unknown]
  - Chest pain [Unknown]
  - Confusional state [Unknown]
  - Drug abuse [Unknown]
  - Dyspnoea [Unknown]
  - Hyperhidrosis [Unknown]
  - Nausea [Unknown]
  - Paraesthesia [Unknown]
  - Vision blurred [Unknown]
  - Vomiting [Unknown]
